FAERS Safety Report 6092874-6 (Version None)
Quarter: 2009Q1

REPORT INFORMATION
  Report Type: 
  Country: None (occurrence: None)
  Receive Date: 20090225
  Receipt Date: 20090218
  Transmission Date: 20090719
  Serious: Yes (Hospitalization, Other)
  Sender: FDA-Public Use
  Company Number: US-B.I. PHARMACEUTICALS,INC./RIDGEFIELD-2009-BP-02065BP

PATIENT
  Sex: Male

DRUGS (18)
  1. SPIRIVA [Suspect]
     Indication: CHRONIC OBSTRUCTIVE PULMONARY DISEASE
     Dosage: 18MCG
     Route: 055
     Dates: start: 20040101
  2. ADVAIR HFA [Concomitant]
     Indication: CHRONIC OBSTRUCTIVE PULMONARY DISEASE
  3. ALPRAZOLAM [Concomitant]
     Indication: TACHYPHRENIA
  4. NORVASC [Concomitant]
     Indication: HYPERTENSION
  5. CELEBREX [Concomitant]
     Indication: MYALGIA
  6. CYMBALTA [Concomitant]
     Indication: DEPRESSION
  7. CHANTIX [Concomitant]
     Indication: SMOKING CESSATION THERAPY
     Dates: start: 20071001, end: 20080101
  8. LORAZEPAM [Concomitant]
     Indication: TACHYPHRENIA
  9. VICODIN [Concomitant]
     Indication: PAIN
  10. DARVOCET [Concomitant]
     Indication: PAIN
     Dates: start: 20040419, end: 20080225
  11. DIOVAN HCT [Concomitant]
     Indication: HYPERTENSION
  12. NEXIUM [Concomitant]
     Indication: GASTROOESOPHAGEAL REFLUX DISEASE
  13. NEXIUM [Concomitant]
     Indication: VOMITING PROJECTILE
  14. NICOTINE [Concomitant]
     Indication: SMOKING CESSATION THERAPY
  15. OXYGEN [Concomitant]
     Indication: CHRONIC OBSTRUCTIVE PULMONARY DISEASE
  16. XOPENEX [Concomitant]
     Indication: CHRONIC OBSTRUCTIVE PULMONARY DISEASE
  17. XOPENEX [Concomitant]
  18. STATINS [Concomitant]

REACTIONS (10)
  - BLOOD TRIGLYCERIDES INCREASED [None]
  - CANDIDIASIS [None]
  - CARDIAC DISORDER [None]
  - CHRONIC OBSTRUCTIVE PULMONARY DISEASE [None]
  - DIABETES MELLITUS [None]
  - EAR PAIN [None]
  - OBSESSIVE-COMPULSIVE DISORDER [None]
  - PULMONARY HYPERTENSION [None]
  - SKIN LACERATION [None]
  - TREMOR [None]
